FAERS Safety Report 19860137 (Version 1)
Quarter: 2021Q3

REPORT INFORMATION
  Report Type: Spontaneous
  Country: US (occurrence: US)
  Receive Date: 20210921
  Receipt Date: 20210921
  Transmission Date: 20211014
  Serious: Yes (Hospitalization)
  Sender: FDA-Public Use
  Company Number: None

PATIENT
  Age: 50 Year
  Sex: Male
  Weight: 186.7 kg

DRUGS (1)
  1. EMPAGLIFLOZIN [Suspect]
     Active Substance: EMPAGLIFLOZIN
     Indication: TYPE 2 DIABETES MELLITUS
     Route: 048
     Dates: start: 20210426, end: 20210917

REACTIONS (4)
  - Necrotising fasciitis [None]
  - Blood bicarbonate increased [None]
  - Fournier^s gangrene [None]
  - Anion gap increased [None]

NARRATIVE: CASE EVENT DATE: 20210917
